FAERS Safety Report 20280164 (Version 2)
Quarter: 2022Q1

REPORT INFORMATION
  Report Type: Report from Study
  Country: FR (occurrence: None)
  Receive Date: 20220103
  Receipt Date: 20220107
  Transmission Date: 20220423
  Serious: Yes (Hospitalization)
  Sender: FDA-Public Use
  Company Number: US-ROCHE-2969389

PATIENT
  Age: 52 Year
  Sex: Female
  Weight: 67 kg

DRUGS (3)
  1. PRALSETINIB [Suspect]
     Active Substance: PRALSETINIB
     Indication: Non-small cell lung cancer
     Dosage: ON 24/NOV/2021, THE PATIENT RECEIVED MOST RECENT DOSE PRIOR TO SAE.
     Route: 048
     Dates: start: 20210904, end: 20211213
  2. LUMIRELAX [Concomitant]
  3. SKENAN [Concomitant]
     Active Substance: MORPHINE SULFATE

REACTIONS (2)
  - Bone pain [Not Recovered/Not Resolved]
  - Pain [Unknown]

NARRATIVE: CASE EVENT DATE: 20211125
